FAERS Safety Report 25856223 (Version 2)
Quarter: 2025Q4

REPORT INFORMATION
  Report Type: Spontaneous
  Country: EU (occurrence: EU)
  Receive Date: 20250928
  Receipt Date: 20251104
  Transmission Date: 20260117
  Serious: Yes (Other)
  Sender: ALEXION PHARMACEUTICALS
  Company Number: None

PATIENT
  Age: 40 Year
  Sex: Female
  Weight: 62 kg

DRUGS (5)
  1. LYNPARZA [Suspect]
     Active Substance: OLAPARIB
     Indication: Breast cancer
     Dosage: 300MG  BID
     Dates: start: 20250903
  2. LYNPARZA [Suspect]
     Active Substance: OLAPARIB
     Dosage: DESSENSIBILIZA??O 100 MG + 100 MG (CUMULATIVA 200) + 100 MG (CUMULATIVA 300) + 150 MG (CUMLT 450)
  3. LYNPARZA [Suspect]
     Active Substance: OLAPARIB
     Dosage: 200 MILLIGRAM, Q12H
     Dates: start: 20250917, end: 20250922
  4. LYNPARZA [Suspect]
     Active Substance: OLAPARIB
     Dosage: 300 MILLIGRAM, Q12H
     Dates: start: 20250923
  5. CALCIFEDIOL [Concomitant]
     Active Substance: CALCIFEDIOL

REACTIONS (3)
  - Rash pruritic [Recovered/Resolved]
  - Feeling hot [Recovered/Resolved]
  - Rash macular [Recovered/Resolved]

NARRATIVE: CASE EVENT DATE: 20250903
